FAERS Safety Report 5110802-4 (Version None)
Quarter: 2006Q3

REPORT INFORMATION
  Report Type: 
  Country: None (occurrence: None)
  Receive Date: 20060731
  Receipt Date: 20060608
  Transmission Date: 20061208
  Serious: No
  Sender: FDA-Public Use
  Company Number: 2006PV015301

PATIENT
  Age: 56 Year
  Sex: Female
  Weight: 89.3586 kg

DRUGS (7)
  1. BYETTA [Suspect]
     Indication: DIABETES MELLITUS NON-INSULIN-DEPENDENT
     Dosage: 5 MCG;BID;SC
     Route: 058
     Dates: start: 20060606
  2. HUMALOG [Concomitant]
  3. LANTUS [Concomitant]
  4. GLUCOPHAGE [Concomitant]
  5. ACTOS /USA/ [Concomitant]
  6. CORTISONE [Concomitant]
  7. .. [Concomitant]

REACTIONS (3)
  - DECREASED APPETITE [None]
  - DRUG INEFFECTIVE [None]
  - WEIGHT DECREASED [None]
